FAERS Safety Report 4595842-6 (Version None)
Quarter: 2005Q1

REPORT INFORMATION
  Report Type: 
  Country: None (occurrence: None)
  Receive Date: 20050224
  Receipt Date: 20050224
  Transmission Date: 20050727
  Serious: Yes (Hospitalization)
  Sender: FDA-Public Use
  Company Number: None

PATIENT
  Sex: Male

DRUGS (12)
  1. PACLITAXEL [Suspect]
     Indication: NON-SMALL CELL LUNG CANCER
     Dosage: 426 MG ONCE INTRAVENOUS
     Route: 042
     Dates: start: 20040913, end: 20040913
  2. METOPROLOL [Concomitant]
  3. LISINOPRIL [Concomitant]
  4. DOCUSATE [Concomitant]
  5. ASPIRIN [Concomitant]
  6. MULTI-VITAMIN [Concomitant]
  7. CIMETIDINE [Concomitant]
  8. LORATADINE [Concomitant]
  9. OMEPRAZOLE [Concomitant]
  10. FLUNISOLIDE NASAL [Concomitant]
  11. ATROVEN [Concomitant]
  12. IBUPROFEN [Concomitant]

REACTIONS (5)
  - DIZZINESS [None]
  - HYPERHIDROSIS [None]
  - HYPOTENSION [None]
  - INFUSION RELATED REACTION [None]
  - NAUSEA [None]
